FAERS Safety Report 9932055 (Version 1)
Quarter: 2014Q1

REPORT INFORMATION
  Report Type: Spontaneous
  Country: US (occurrence: None)
  Receive Date: 20140227
  Receipt Date: 20140227
  Transmission Date: 20141002
  Serious: Yes (Hospitalization)
  Sender: FDA-Public Use
  Company Number: None

PATIENT
  Sex: Female

DRUGS (13)
  1. METFORMIN [Suspect]
     Indication: TYPE 2 DIABETES MELLITUS
  2. ACARBOSE [Concomitant]
  3. ADVAIR DISKUS [Concomitant]
  4. ALBUTEROL [Concomitant]
  5. AMITRIPTYLLINE [Concomitant]
  6. ASPIRIN [Concomitant]
  7. GLIPIZIDE [Concomitant]
  8. ESOMEPRAZOLE [Concomitant]
  9. OXYCODONE [Concomitant]
  10. PREDNISONE [Concomitant]
  11. TRAVOPROST [Concomitant]
  12. SIMVASTATIN [Concomitant]
  13. ZOLPIDEM [Concomitant]

REACTIONS (6)
  - Lactic acidosis [None]
  - Contraindication to medical treatment [None]
  - Asthma [None]
  - Blood lactic acid increased [None]
  - Blood creatinine increased [None]
  - Sarcoidosis [None]
